FAERS Safety Report 9676348 (Version 2)
Quarter: 2014Q1

REPORT INFORMATION
  Report Type: Report from Study
  Country: DE (occurrence: DE)
  Receive Date: 20131107
  Receipt Date: 20140215
  Transmission Date: 20141002
  Serious: Yes (Hospitalization, Other)
  Sender: FDA-Public Use
  Company Number: DE-ROCHE-1299435

PATIENT
  Age: 82 Year
  Sex: Male

DRUGS (3)
  1. RANIBIZUMAB [Suspect]
     Indication: VISUAL IMPAIRMENT
     Dosage: PRN
     Route: 050
     Dates: start: 20130221
  2. RANIBIZUMAB [Suspect]
     Indication: DIABETIC RETINAL OEDEMA
     Route: 050
     Dates: start: 20130425
  3. VIRGAN [Concomitant]

REACTIONS (7)
  - Eye contusion [Recovered/Resolved]
  - Endophthalmitis [Recovered/Resolved]
  - Conjunctival haemorrhage [Unknown]
  - Iris haemorrhage [Unknown]
  - Conjunctivitis allergic [Unknown]
  - Anterior chamber cell [Unknown]
  - Ophthalmic herpes simplex [Recovered/Resolved]
